FAERS Safety Report 7170080-1 (Version None)
Quarter: 2010Q4

REPORT INFORMATION
  Report Type: 
  Country: None (occurrence: None)
  Receive Date: 20101217
  Receipt Date: 20101209
  Transmission Date: 20110411
  Serious: Yes (Other)
  Sender: FDA-Public Use
  Company Number: US-JNJFOC-20100703733

PATIENT
  Sex: Female

DRUGS (12)
  1. LEVAQUIN [Suspect]
     Indication: RESPIRATORY TRACT INFECTION
     Route: 048
  2. LEVAQUIN [Suspect]
     Indication: SINUSITIS
     Route: 048
  3. CIPROFLOXACIN [Suspect]
     Indication: INFECTION
     Route: 065
  4. METHYLPREDNISOLONE [Suspect]
     Indication: PRODUCT USED FOR UNKNOWN INDICATION
     Route: 065
  5. PREDNISONE [Suspect]
     Indication: PRODUCT USED FOR UNKNOWN INDICATION
     Route: 065
  6. SINGULAIR [Concomitant]
  7. DARVOCET [Concomitant]
  8. REGLAN [Concomitant]
  9. SYNTHROID [Concomitant]
  10. ZETIA [Concomitant]
  11. ZELNORM [Concomitant]
  12. COZAAR [Concomitant]

REACTIONS (2)
  - EPICONDYLITIS [None]
  - TENDONITIS [None]
